FAERS Safety Report 6296604-4 (Version None)
Quarter: 2009Q3

REPORT INFORMATION
  Report Type: 
  Country: None (occurrence: None)
  Receive Date: 20090804
  Receipt Date: 20090727
  Transmission Date: 20100115
  Serious: Yes (Death, Life-Threatening)
  Sender: FDA-Public Use
  Company Number: DE-GENENTECH-287705

PATIENT
  Sex: Male
  Weight: 90 kg

DRUGS (8)
  1. ACTIVASE [Suspect]
     Indication: ARTERIAL THROMBOSIS
     Dosage: 8 MG, UNK
     Dates: start: 20090318
  2. ACTIVASE [Suspect]
     Indication: CEREBRAL INFARCTION
     Dosage: 72 UNK, UNK
  3. ACTIVASE [Suspect]
     Indication: HEMIPARESIS
  4. IRBESARTAN [Concomitant]
     Indication: DRUG USE FOR UNKNOWN INDICATION
     Dosage: 300 MG, UNK
     Route: 048
  5. HYDROCHLOROTHIAZIDE [Concomitant]
     Indication: DRUG USE FOR UNKNOWN INDICATION
     Dosage: 25 MG, UNK
     Route: 048
  6. TOREM [Concomitant]
     Indication: DRUG USE FOR UNKNOWN INDICATION
     Dosage: 5 MG, UNK
  7. METOPROLOL TARTRATE [Concomitant]
     Indication: DRUG USE FOR UNKNOWN INDICATION
     Dosage: UNK
     Route: 048
  8. AMLODIPINE [Concomitant]
     Indication: DRUG USE FOR UNKNOWN INDICATION
     Dosage: 10 MG, UNK
     Route: 048

REACTIONS (5)
  - ASPIRATION [None]
  - CEREBRAL DISORDER [None]
  - CEREBRAL HAEMORRHAGE [None]
  - EPISTAXIS [None]
  - RESPIRATORY FAILURE [None]
